FAERS Safety Report 8270091-9 (Version None)
Quarter: 2012Q2

REPORT INFORMATION
  Report Type: 
  Country: None (occurrence: None)
  Receive Date: 20120410
  Receipt Date: 20120404
  Transmission Date: 20120825
  Serious: Yes (Death, Other)
  Sender: FDA-Public Use
  Company Number: JP-JNJFOC-20100701400

PATIENT
  Sex: Female
  Weight: 49 kg

DRUGS (14)
  1. DOXORUBICIN HCL [Suspect]
     Dosage: CYCLE 6
     Route: 042
     Dates: start: 20100113, end: 20100113
  2. DOXORUBICIN HCL [Suspect]
     Dosage: CYCLE 2
     Route: 042
     Dates: start: 20090908, end: 20090908
  3. DOXORUBICIN HCL [Suspect]
     Dosage: CYCLE 1
     Route: 042
     Dates: start: 20090811, end: 20090811
  4. DOXORUBICIN HCL [Suspect]
     Dosage: CYCLE 7
     Route: 042
     Dates: start: 20100210, end: 20100210
  5. DOXORUBICIN HCL [Suspect]
     Dosage: CYCLE 3
     Route: 042
     Dates: start: 20091006, end: 20091006
  6. RAMELTEON [Concomitant]
     Indication: PROPHYLAXIS
     Route: 042
     Dates: start: 20100113, end: 20100114
  7. DOXORUBICIN HCL [Suspect]
     Dosage: CYCLE 5
     Route: 042
     Dates: start: 20091203, end: 20091203
  8. DOXORUBICIN HCL [Suspect]
     Dosage: CYCLE 4
     Route: 042
     Dates: start: 20091105, end: 20091105
  9. VITAMEDIN [Concomitant]
     Indication: PROPHYLAXIS
     Route: 042
     Dates: start: 20100113, end: 20100114
  10. DOXORUBICIN HCL [Suspect]
     Indication: OVARIAN CANCER RECURRENT
     Dosage: CYCLE 8
     Route: 042
     Dates: start: 20100310, end: 20100310
  11. DECADRON [Concomitant]
     Route: 048
     Dates: start: 20100119, end: 20100119
  12. DECADRON [Concomitant]
     Route: 048
     Dates: start: 20100112, end: 20100118
  13. AZUNOL [Concomitant]
     Indication: PROPHYLAXIS
     Route: 049
     Dates: start: 20090812, end: 20100220
  14. DECADRON [Concomitant]
     Indication: PROPHYLAXIS
     Route: 048
     Dates: start: 20100120, end: 20100120

REACTIONS (2)
  - INTESTINAL OBSTRUCTION [None]
  - OVARIAN CANCER RECURRENT [None]
